FAERS Safety Report 20827546 (Version 1)
Quarter: 2022Q2

REPORT INFORMATION
  Report Type: Spontaneous
  Country: US (occurrence: None)
  Receive Date: 20220513
  Receipt Date: 20220513
  Transmission Date: 20220721
  Serious: No
  Sender: FDA-Public Use
  Company Number: None

PATIENT
  Age: 65 Year
  Sex: Male

DRUGS (1)
  1. CAPECITABINE [Suspect]
     Active Substance: CAPECITABINE
     Dosage: 150MG BID ORAL
     Route: 048

REACTIONS (3)
  - Abdominal pain upper [None]
  - Neoplasm malignant [None]
  - Full blood count decreased [None]

NARRATIVE: CASE EVENT DATE: 20220512
